FAERS Safety Report 5089547-5 (Version None)
Quarter: 2006Q3

REPORT INFORMATION
  Report Type: 
  Country: None (occurrence: None)
  Receive Date: 20060727
  Receipt Date: 20060606
  Transmission Date: 20061208
  Serious: Yes (Other)
  Sender: FDA-Public Use
  Company Number: 2006073138

PATIENT
  Age: 69 Year
  Sex: Male
  Weight: 79.3795 kg

DRUGS (5)
  1. LYRICA [Suspect]
     Indication: NEURALGIA
     Dosage: 225 MG (75 MG, 3 IN 1 D), UNKNOWN
  2. ALLOPURINOL [Concomitant]
  3. NAMENDA [Concomitant]
  4. ENALAPRIL MALEATE [Concomitant]
  5. COREG [Concomitant]

REACTIONS (5)
  - DIPLOPIA [None]
  - DRUG INEFFECTIVE [None]
  - JOINT SWELLING [None]
  - PAIN [None]
  - WEIGHT INCREASED [None]
